FAERS Safety Report 7310330-1 (Version None)
Quarter: 2011Q1

REPORT INFORMATION
  Report Type: 
  Country: None (occurrence: None)
  Receive Date: 20110224
  Receipt Date: 20100521
  Transmission Date: 20110831
  Serious: Yes (Death, Other)
  Sender: FDA-Public Use
  Company Number: JP-BAYER-200914478BYL

PATIENT
  Sex: Male
  Weight: 51 kg

DRUGS (5)
  1. CEFMETAZOLE SODIUM [Concomitant]
     Dosage: DAILY DOSE 2 G
     Route: 042
     Dates: start: 20090903, end: 20090906
  2. NEXAVAR [Suspect]
     Dosage: 400 MG (DAILY DOSE), , ORAL
     Route: 048
     Dates: start: 20090901, end: 20090917
  3. NEXAVAR [Suspect]
     Dosage: 400 MG (DAILY DOSE), , ORAL
     Route: 048
     Dates: start: 20090919, end: 20091007
  4. NAIXAN [Concomitant]
     Dosage: DAILY DOSE 300 MG
     Dates: start: 20090923
  5. NEXAVAR [Suspect]
     Indication: HEPATIC NEOPLASM MALIGNANT
     Dosage: 800 MG (DAILY DOSE), , ORAL
     Route: 048
     Dates: start: 20090821, end: 20090828

REACTIONS (5)
  - HEPATIC NEOPLASM MALIGNANT [None]
  - LIVER DISORDER [None]
  - RENAL DISORDER [None]
  - ABDOMINAL PAIN [None]
  - VOMITING [None]
